FAERS Safety Report 22288402 (Version 3)
Quarter: 2023Q2

REPORT INFORMATION
  Report Type: Report from Study
  Country: US (occurrence: US)
  Receive Date: 20230505
  Receipt Date: 20230615
  Transmission Date: 20230721
  Serious: Yes (Death)
  Sender: FDA-Public Use
  Company Number: US-002147023-NVSC2023US103099

PATIENT
  Sex: Female

DRUGS (2)
  1. PIQRAY [Suspect]
     Active Substance: ALPELISIB
     Indication: Product used for unknown indication
     Dosage: 200 MG, QD
     Route: 048
     Dates: start: 20220531
  2. PIQRAY [Suspect]
     Active Substance: ALPELISIB
     Dosage: 150 MG (EVERY OTHER DAY)
     Route: 065
     Dates: end: 202206

REACTIONS (2)
  - Disease progression [Fatal]
  - Diarrhoea [Unknown]
